FAERS Safety Report 9603475 (Version 1)
Quarter: 2013Q4

REPORT INFORMATION
  Report Type: Report from Study
  Country: DE (occurrence: DE)
  Receive Date: 20131007
  Receipt Date: 20131007
  Transmission Date: 20140711
  Serious: Yes (Hospitalization)
  Sender: FDA-Public Use
  Company Number: DE-ABBVIE-13P-062-1153450-00

PATIENT
  Age: 72 Year
  Sex: Female

DRUGS (4)
  1. HUMIRA [Suspect]
     Indication: CROHN^S DISEASE
     Route: 058
     Dates: start: 20130718, end: 20130808
  2. HUMIRA [Suspect]
     Route: 058
     Dates: start: 20130912, end: 20130912
  3. HUMIRA [Suspect]
     Route: 058
     Dates: start: 20130926, end: 20130926
  4. HUMIRA [Suspect]
     Route: 058

REACTIONS (6)
  - Syncope [Recovering/Resolving]
  - Pyrexia [Recovering/Resolving]
  - Haematology test abnormal [Recovering/Resolving]
  - Arthralgia [Recovering/Resolving]
  - Renal venous congestion [Recovering/Resolving]
  - Sepsis [Recovering/Resolving]
